FAERS Safety Report 5146604-2 (Version None)
Quarter: 2006Q4

REPORT INFORMATION
  Report Type: 
  Country: None (occurrence: None)
  Receive Date: 20060911
  Receipt Date: 20060711
  Transmission Date: 20070319
  Serious: No
  Sender: FDA-Public Use
  Company Number: IND-AE-06-SAN-031

PATIENT
  Age: 70 Year
  Sex: Male
  Weight: 85.2762 kg

DRUGS (6)
  1. SANCTURA [Suspect]
     Indication: NOCTURIA
     Dosage: 20 MG -BID-ORAL
     Route: 048
     Dates: start: 20060707, end: 20060708
  2. COZAAR [Concomitant]
  3. NORVASC [Concomitant]
  4. HYDROCHLOROTHIAZIDE [Concomitant]
  5. FOLIC ACID [Concomitant]
  6. ASMANEX INHALER [Concomitant]

REACTIONS (1)
  - URINARY RETENTION [None]
